FAERS Safety Report 8381085-7 (Version None)
Quarter: 2012Q1

REPORT INFORMATION
  Report Type: 
  Country: None (occurrence: None)
  Receive Date: 20120323
  Receipt Date: 20110705
  Transmission Date: 20120608
  Serious: Yes (Hospitalization, Other)
  Sender: FDA-Public Use
  Company Number: 163-21880-11032951

PATIENT
  Age: 83 Year
  Sex: Male

DRUGS (5)
  1. ASPIRIN [Concomitant]
  2. DEXAMETHASONE [Concomitant]
  3. COUMADIN [Concomitant]
  4. REVLIMID [Suspect]
     Indication: MULTIPLE MYELOMA
     Dosage: 10 MG, 1 IN 1 D, PO ; 25 MG, 21 OF 28 DAY CYCLE, PO
     Route: 048
     Dates: start: 20101001
  5. REVLIMID [Suspect]
     Indication: MULTIPLE MYELOMA
     Dosage: 10 MG, 1 IN 1 D, PO ; 25 MG, 21 OF 28 DAY CYCLE, PO
     Route: 048
     Dates: start: 20100401

REACTIONS (1)
  - THROMBOSIS [None]
